FAERS Safety Report 7619564-X (Version None)
Quarter: 2011Q3

REPORT INFORMATION
  Report Type: 
  Country: None (occurrence: None)
  Receive Date: 20110719
  Receipt Date: 20110705
  Transmission Date: 20111222
  Serious: Yes (Death)
  Sender: FDA-Public Use
  Company Number: AU-MYLANLABS-2011S1014378

PATIENT
  Age: 45 Year
  Sex: Male

DRUGS (3)
  1. METHYLENEDIOXYMETHAMPHETAMINE [Suspect]
     Route: 065
  2. MORPHINE [Suspect]
     Route: 065
  3. VENLAFAXINE [Suspect]
     Route: 065

REACTIONS (2)
  - DRUG INTERACTION [None]
  - OVERDOSE [None]
